FAERS Safety Report 7633216-1 (Version None)
Quarter: 2011Q3

REPORT INFORMATION
  Report Type: 
  Country: None (occurrence: None)
  Receive Date: 20110725
  Receipt Date: 20110714
  Transmission Date: 20111222
  Serious: Yes (Hospitalization)
  Sender: FDA-Public Use
  Company Number: IT-ROCHE-788683

PATIENT
  Sex: Female
  Weight: 67 kg

DRUGS (7)
  1. OMEPRAZOLE [Concomitant]
     Indication: GASTRITIS
     Dosage: FREQUENCY: 1 CP DAY
     Route: 048
  2. LEVOTIROXINA SODICA [Concomitant]
     Indication: HYPOTHYROIDISM
     Dosage: FREQUENCY:1 CP DIE, DRUG REPORTED AS LEVOTIROXINA
     Route: 048
  3. BROMAZEPAM [Concomitant]
     Indication: ANXIETY
     Dosage: DOSE 12 GTT ONCE DAILY
     Route: 048
  4. AMITRIPTILINA [Concomitant]
     Indication: DEPRESSION
     Dosage: DOSE 50 , FREQUENCY: 2 CP DIE, DRUG REPORTED AS AMIRIPTILINA
     Route: 048
  5. PEGINTERFERON ALFA-2A [Suspect]
     Indication: HEPATITIS C
     Dosage: DOSE 180/W
     Route: 058
     Dates: start: 20110111, end: 20110705
  6. RIBAVIRIN [Suspect]
     Indication: HEPATITIS C
     Dosage: DOSE:1000 EVERY DAY
     Route: 048
     Dates: start: 20110111, end: 20110708
  7. SERTRALINA [Concomitant]
     Indication: DEPRESSION
     Dosage: FREQUENCY: 1 CP DAY
     Route: 048

REACTIONS (2)
  - MENTAL IMPAIRMENT [None]
  - GENERAL PHYSICAL HEALTH DETERIORATION [None]
